FAERS Safety Report 5239932-3 (Version None)
Quarter: 2007Q1

REPORT INFORMATION
  Report Type: 
  Country: None (occurrence: None)
  Receive Date: 20070216
  Receipt Date: 20070208
  Transmission Date: 20070707
  Serious: Yes (Death, Hospitalization)
  Sender: FDA-Public Use
  Company Number: US-ABBOTT-07P-163-0358994-00

PATIENT
  Sex: Female

DRUGS (2)
  1. DEPAKOTE [Suspect]
     Indication: BIPOLAR DISORDER
     Route: 048
     Dates: end: 20070201
  2. LAMOTRIGINE [Interacting]
     Indication: BIPOLAR DISORDER
     Route: 048
     Dates: end: 20070201

REACTIONS (2)
  - DRUG INTERACTION [None]
  - HEPATIC FAILURE [None]
